FAERS Safety Report 26113933 (Version 1)
Quarter: 2025Q4

REPORT INFORMATION
  Report Type: Spontaneous
  Country: EU (occurrence: EU)
  Receive Date: 20251202
  Receipt Date: 20251202
  Transmission Date: 20260117
  Serious: Yes (Other)
  Sender: MYLAN
  Company Number: EU-VELOXIS PHARMACEUTICALS-2020VELFR-000994

PATIENT
  Sex: Male
  Weight: 23 kg

DRUGS (10)
  1. TACROLIMUS [Suspect]
     Active Substance: TACROLIMUS
     Indication: Nephrotic syndrome
     Dosage: UNK
  2. PREDNISONE [Suspect]
     Active Substance: PREDNISONE
     Indication: Nephrotic syndrome
     Dosage: 20 MILLIGRAM, QD
  3. PREDNISONE [Suspect]
     Active Substance: PREDNISONE
     Dosage: 60 MILLIGRAM/SQ. METER, BID, 60 MILLIGRAM/SQ. METER, BID
  4. PREDNISONE [Suspect]
     Active Substance: PREDNISONE
     Dosage: UNK, BID
  5. METHYLPREDNISOLONE [Suspect]
     Active Substance: METHYLPREDNISOLONE
     Indication: Nephrotic syndrome
     Dosage: 1 MILLIGRAM/KILOGRAM
  6. OBINUTUZUMAB [Suspect]
     Active Substance: OBINUTUZUMAB
     Indication: Nephrotic syndrome
     Dosage: 600 MILLIGRAM
  7. DARATUMUMAB [Suspect]
     Active Substance: DARATUMUMAB
     Indication: Nephrotic syndrome
     Dosage: 600 MILLIGRAM
  8. ACETAMINOPHEN [Concomitant]
     Active Substance: ACETAMINOPHEN
     Indication: Product used for unknown indication
     Dosage: 15 MILLIGRAM/KILOGRAM
  9. SULFAMETHOXAZOLE [Concomitant]
     Active Substance: SULFAMETHOXAZOLE
     Indication: Product used for unknown indication
     Dosage: 800 MILLIGRAM
  10. DEXCHLORPHENIRAMINE [Concomitant]
     Active Substance: DEXCHLORPHENIRAMINE
     Indication: Product used for unknown indication
     Dosage: UNK

REACTIONS (2)
  - Hypogammaglobulinaemia [Unknown]
  - Off label use [Recovered/Resolved]
